FAERS Safety Report 6469708-0 (Version None)
Quarter: 2009Q4

REPORT INFORMATION
  Report Type: 
  Country: None (occurrence: None)
  Receive Date: 20091203
  Receipt Date: 20071010
  Transmission Date: 20100525
  Serious: Yes (Other)
  Sender: FDA-Public Use
  Company Number: US-ELI_LILLY_AND_COMPANY-US200710002778

PATIENT
  Sex: Male
  Weight: 167.35 kg

DRUGS (14)
  1. BYETTA [Suspect]
     Indication: TYPE 2 DIABETES MELLITUS
     Dosage: 5 UG, 2/D
     Route: 058
     Dates: start: 20050101, end: 20050101
  2. BYETTA [Suspect]
     Dosage: 10 UG, 2/D
     Route: 058
     Dates: start: 20050101
  3. GLYBURIDE AND METFORMIN HCL [Concomitant]
     Indication: DIABETES MELLITUS
     Dosage: UNK D/F, 2/D
  4. POTASSIUM CHLORIDE [Concomitant]
     Dosage: 20 UNK, UNKNOWN
  5. HYZAAR [Concomitant]
     Indication: HYPERTENSION
     Dosage: UNK D/F, UNKNOWN
  6. TOPROL-XL [Concomitant]
     Indication: HEART RATE IRREGULAR
     Dosage: 50 MG, UNKNOWN
  7. ZETIA [Concomitant]
     Indication: BLOOD CHOLESTEROL
     Dosage: 10 MG, UNKNOWN
  8. VERELAN [Concomitant]
     Indication: HYPERTENSION
     Dosage: 100 MG, UNKNOWN
  9. CYMBALTA [Concomitant]
     Indication: NEUROPATHY PERIPHERAL
     Dosage: 30 MG, UNKNOWN
  10. ASPIRIN [Concomitant]
     Dosage: UNK, UNKNOWN
  11. VITAMIN E [Concomitant]
     Dosage: UNK, UNKNOWN
  12. CENTRUM SILVER [Concomitant]
     Dosage: UNK, UNKNOWN
  13. ALPHA LIPOIC ACID [Concomitant]
     Indication: NEUROPATHY PERIPHERAL
     Dosage: UNK, UNKNOWN
  14. BREWERS YEAST [Concomitant]
     Indication: NEUROPATHY PERIPHERAL
     Dosage: 500 UNK, UNKNOWN

REACTIONS (6)
  - ASTHENIA [None]
  - BLOOD GLUCOSE INCREASED [None]
  - FATIGUE [None]
  - PROSTATE CANCER [None]
  - WEIGHT DECREASED [None]
  - WEIGHT INCREASED [None]
